FAERS Safety Report 4601782-6 (Version None)
Quarter: 2005Q1

REPORT INFORMATION
  Report Type: 
  Country: None (occurrence: None)
  Receive Date: 20050128
  Receipt Date: 20040218
  Transmission Date: 20050727
  Serious: Yes (Other)
  Sender: FDA-Public Use
  Company Number: 138300USA

PATIENT
  Sex: Female

DRUGS (1)
  1. COPAXONE [Suspect]
     Indication: MULTIPLE SCLEROSIS
     Dates: start: 20040201

REACTIONS (5)
  - CHILLS [None]
  - CONVULSION [None]
  - HYPOTONIA [None]
  - MUSCLE SPASMS [None]
  - VOMITING [None]
